FAERS Safety Report 16329338 (Version 1)
Quarter: 2019Q2

REPORT INFORMATION
  Report Type: Report from Study
  Country: None (occurrence: US)
  Receive Date: 20190520
  Receipt Date: 20190520
  Transmission Date: 20190711
  Serious: Yes (Other)
  Sender: FDA-Public Use
  Company Number: US-ABBVIE-18K-163-2544430-00

PATIENT
  Age: 57 Year
  Sex: Female

DRUGS (1)
  1. HUMIRA [Suspect]
     Active Substance: ADALIMUMAB
     Indication: RHEUMATOID ARTHRITIS
     Route: 058
     Dates: start: 20181024

REACTIONS (4)
  - Arthralgia [Unknown]
  - Glaucoma [Unknown]
  - Adverse drug reaction [Unknown]
  - Neck pain [Unknown]

NARRATIVE: CASE EVENT DATE: 2018
